FAERS Safety Report 18263367 (Version 1)
Quarter: 2020Q3

REPORT INFORMATION
  Report Type: Report from Study
  Country: FR (occurrence: FR)
  Receive Date: 20200914
  Receipt Date: 20200914
  Transmission Date: 20201103
  Serious: Yes (Other)
  Sender: FDA-Public Use
  Company Number: FR-GILEAD-2020-0494417

PATIENT
  Age: 70 Year
  Sex: Female

DRUGS (2)
  1. AXICABTAGENE CILOLEUCEL [Suspect]
     Active Substance: AXICABTAGENE CILOLEUCEL
     Indication: DIFFUSE LARGE B-CELL LYMPHOMA
     Dosage: 1 DOSAGE FORM, ONCE; 200M OF CELLS
     Route: 042
     Dates: start: 2020, end: 2020
  2. AXICABTAGENE CILOLEUCEL [Suspect]
     Active Substance: AXICABTAGENE CILOLEUCEL
     Dosage: 1 DOSAGE FORM, ONCE
     Route: 042

REACTIONS (1)
  - Diffuse large B-cell lymphoma recurrent [Recovering/Resolving]

NARRATIVE: CASE EVENT DATE: 2020
